FAERS Safety Report 9213777 (Version 1)
Quarter: 2013Q2

REPORT INFORMATION
  Report Type: Spontaneous
  Country: US (occurrence: None)
  Receive Date: 20130404
  Receipt Date: 20130404
  Transmission Date: 20140414
  Serious: Yes (Disabling)
  Sender: FDA-Public Use
  Company Number: None

PATIENT
  Age: 67 Year
  Sex: Female
  Weight: 69.4 kg

DRUGS (2)
  1. CRESTOR [Suspect]
     Indication: CAROTID ARTERY DISEASE
     Dosage: 5 MG 1 PER DAY  PO
     Route: 048
     Dates: start: 20130111, end: 20130130
  2. CRESTOR [Suspect]
     Indication: PROPHYLAXIS
     Dosage: 5 MG 1 PER DAY  PO
     Route: 048
     Dates: start: 20130111, end: 20130130

REACTIONS (3)
  - Dysstasia [None]
  - Muscle disorder [None]
  - Myalgia [None]
